FAERS Safety Report 8999927 (Version 1)
Quarter: 2013Q1

REPORT INFORMATION
  Report Type: Spontaneous
  Country: JP (occurrence: JP)
  Receive Date: 20130102
  Receipt Date: 20130102
  Transmission Date: 20140127
  Serious: Yes (Life-Threatening, Other)
  Sender: FDA-Public Use
  Company Number: JP-PFIZER INC-2012332499

PATIENT
  Age: 85 Year
  Sex: Male

DRUGS (2)
  1. ZOSYN [Suspect]
     Indication: PNEUMONIA
     Dosage: 4.5 G DAILY
     Route: 041
     Dates: start: 201211, end: 201211
  2. BAYASPIRIN [Concomitant]
     Dosage: UNK
     Route: 048

REACTIONS (4)
  - Chest discomfort [Recovered/Resolved]
  - Rash [Recovered/Resolved]
  - Blood pressure decreased [Recovered/Resolved]
  - Anaphylactic shock [Recovered/Resolved]
